FAERS Safety Report 5799192-1 (Version None)
Quarter: 2008Q3

REPORT INFORMATION
  Report Type: 
  Country: None (occurrence: None)
  Receive Date: 20080702
  Receipt Date: 20080624
  Transmission Date: 20090109
  Serious: Yes (Other)
  Sender: FDA-Public Use
  Company Number: US-PFIZER INC-2008039295

PATIENT
  Sex: Female
  Weight: 59 kg

DRUGS (1)
  1. CHANTIX [Suspect]
     Indication: SMOKING CESSATION THERAPY
     Route: 048
     Dates: start: 20080412, end: 20080423

REACTIONS (15)
  - ABDOMINAL DISTENSION [None]
  - ABDOMINAL PAIN LOWER [None]
  - ABDOMINAL TENDERNESS [None]
  - ASCITES [None]
  - CONSTIPATION [None]
  - FLATULENCE [None]
  - HEPATIC CYST [None]
  - IRRITABLE BOWEL SYNDROME [None]
  - NAUSEA [None]
  - NEPHROLITHIASIS [None]
  - OVARIAN CYST [None]
  - PAIN [None]
  - POLLAKIURIA [None]
  - RASH [None]
  - URINE OUTPUT INCREASED [None]
